FAERS Safety Report 5200814-4 (Version None)
Quarter: 2006Q4

REPORT INFORMATION
  Report Type: 
  Country: None (occurrence: None)
  Receive Date: 20061016
  Receipt Date: 20060713
  Transmission Date: 20070319
  Serious: No
  Sender: FDA-Public Use
  Company Number: 2006SP002704

PATIENT
  Age: 49 Year
  Sex: Male

DRUGS (2)
  1. LUNESTA [Suspect]
     Dosage: 3 MG; ORAL;  6 MG; ORAL
     Route: 048
     Dates: start: 20060301, end: 20060501
  2. LUNESTA [Suspect]
     Dosage: 3 MG; ORAL;  6 MG; ORAL
     Route: 048
     Dates: start: 20060530

REACTIONS (2)
  - DRUG INEFFECTIVE [None]
  - INSOMNIA [None]
